FAERS Safety Report 6929834-6 (Version None)
Quarter: 2010Q3

REPORT INFORMATION
  Report Type: 
  Country: None (occurrence: None)
  Receive Date: 20100818
  Receipt Date: 20100804
  Transmission Date: 20110219
  Serious: Yes (Life-Threatening, Hospitalization)
  Sender: FDA-Public Use
  Company Number: BR-ABBOTT-10P-020-0653644-00

PATIENT
  Sex: Female
  Weight: 86 kg

DRUGS (10)
  1. RITONAVIR [Suspect]
     Indication: PROPHYLAXIS AGAINST HIV INFECTION
     Route: 048
     Dates: start: 20100518, end: 20100614
  2. FLUOXETINE [Concomitant]
     Indication: DEPRESSION
     Route: 048
     Dates: start: 20091228, end: 20100614
  3. METFORMIN HCL [Concomitant]
     Indication: DIABETES MELLITUS
     Route: 048
     Dates: end: 20100614
  4. CAPTOPRIL [Concomitant]
     Indication: HYPERTENSION
     Route: 048
     Dates: end: 20100614
  5. LAMIVUDINE [Concomitant]
     Indication: PROPHYLAXIS AGAINST HIV INFECTION
     Route: 048
     Dates: start: 20100518
  6. LAMIVUDINE + ZIDOVUDINE [Concomitant]
     Indication: PROPHYLAXIS AGAINST HIV INFECTION
     Route: 048
     Dates: start: 20091021, end: 20100211
  7. LAMIVUDINE + ZIDOVUDINE [Concomitant]
     Dates: start: 20100415, end: 20100518
  8. TENOFOVIR DISOPROXIL FUMARATE [Concomitant]
     Indication: PROPHYLAXIS AGAINST HIV INFECTION
     Route: 048
     Dates: start: 20100518
  9. ATAZANAVIR SULFATE [Concomitant]
     Indication: PROPHYLAXIS AGAINST HIV INFECTION
     Dates: start: 20091021, end: 20100211
  10. ATAZANAVIR SULFATE [Concomitant]
     Dates: start: 20100415, end: 20100614

REACTIONS (1)
  - HAEMOLYTIC ANAEMIA [None]
